FAERS Safety Report 10240828 (Version 3)
Quarter: 2021Q1

REPORT INFORMATION
  Report Type: Other
  Country: CA (occurrence: CA)
  Receive Date: 20140617
  Receipt Date: 20210222
  Transmission Date: 20210419
  Serious: Yes (Life-Threatening, Hospitalization, Other)
  Sender: FDA-Public Use
  Company Number: CA-NAPPMUNDI-CAN-2014-0004996

PATIENT
  Sex: Male
  Weight: 2 kg

DRUGS (12)
  1. TYLENOL WITH CODEINE [Suspect]
     Active Substance: ACETAMINOPHEN\CODEINE PHOSPHATE
     Dosage: 3 DF, UNK
  2. OXYCODONE [Suspect]
     Active Substance: OXYCODONE
     Dosage: 6 EVERY HOUR, UNK
     Route: 063
  3. CODEINE [Suspect]
     Active Substance: CODEINE
     Indication: PRODUCT USED FOR UNKNOWN INDICATION
     Dosage: UNK
     Route: 063
  4. CODEINE [Suspect]
     Active Substance: CODEINE
     Indication: PRODUCT USED FOR UNKNOWN INDICATION
     Dosage: 2.1 MG PER KG
     Route: 063
  5. OXYCODONE [Suspect]
     Active Substance: OXYCODONE
     Indication: PRODUCT USED FOR UNKNOWN INDICATION
     Dosage: 6 EVERY HOUR, UNK
     Route: 063
  6. OXYCODONE [Suspect]
     Active Substance: OXYCODONE
     Dosage: 4 EVERY HOUR
  7. IBUPROFEN. [Suspect]
     Active Substance: IBUPROFEN
     Indication: PRODUCT USED FOR UNKNOWN INDICATION
     Dosage: UNK
     Route: 063
  8. OXYCODONE [Suspect]
     Active Substance: OXYCODONE
     Dosage: 4 EVERY 1 DAY
     Route: 063
  9. OXYCODONE [Suspect]
     Active Substance: OXYCODONE
     Indication: PRODUCT USED FOR UNKNOWN INDICATION
     Dosage: 4 EVERY HOUR, UNK
  10. OXYCODONE [Suspect]
     Active Substance: OXYCODONE
     Dosage: CYCLICAL
     Route: 063
  11. ACETAMINOPHEN. [Suspect]
     Active Substance: ACETAMINOPHEN
     Indication: PRODUCT USED FOR UNKNOWN INDICATION
     Dosage: UNK
     Route: 063
  12. TYLENOL WITH CODEINE [Suspect]
     Active Substance: ACETAMINOPHEN\CODEINE PHOSPHATE
     Indication: PRODUCT USED FOR UNKNOWN INDICATION
     Dosage: 3 UNK, UNK
     Route: 063

REACTIONS (4)
  - Hypersomnia [Unknown]
  - Maternal exposure during breast feeding [Unknown]
  - Respiratory arrest [Unknown]
  - Lethargy [Unknown]
